FAERS Safety Report 9192665 (Version 1)
Quarter: 2013Q1

REPORT INFORMATION
  Report Type: Spontaneous
  Country: US (occurrence: None)
  Receive Date: 20130325
  Receipt Date: 20130325
  Transmission Date: 20140127
  Serious: No
  Sender: FDA-Public Use
  Company Number: None

PATIENT
  Age: 27 Year
  Sex: Female

DRUGS (1)
  1. AVONEX [Suspect]
     Dosage: 30 MCG  ONCE A WEEK  INTRAMUSCULARLY
     Route: 030
     Dates: start: 20130131

REACTIONS (2)
  - Thrombosis [None]
  - Influenza like illness [None]
